FAERS Safety Report 7787240-9 (Version None)
Quarter: 2011Q3

REPORT INFORMATION
  Report Type: 
  Country: None (occurrence: None)
  Receive Date: 20110929
  Receipt Date: 20110919
  Transmission Date: 20111222
  Serious: Yes (Hospitalization)
  Sender: FDA-Public Use
  Company Number: US-ACTELION-A-NJ2011-52492

PATIENT

DRUGS (1)
  1. TRACLEER [Suspect]
     Indication: PULMONARY ARTERIAL HYPERTENSION
     Dosage: UNK
     Route: 048
     Dates: start: 20080505

REACTIONS (5)
  - MECHANICAL VENTILATION [None]
  - GASTROINTESTINAL TUBE INSERTION [None]
  - DYSPNOEA [None]
  - PNEUMONIA [None]
  - TRACHEOSTOMY [None]
